FAERS Safety Report 18393676 (Version 1)
Quarter: 2020Q4

REPORT INFORMATION
  Report Type: Spontaneous
  Country: US (occurrence: US)
  Receive Date: 20201016
  Receipt Date: 20201016
  Transmission Date: 20210114
  Serious: No
  Sender: FDA-Public Use
  Company Number: US-BAYER-2020-221203

PATIENT

DRUGS (1)
  1. GADAVIST [Suspect]
     Active Substance: GADOBUTROL
     Dosage: UNK, ONCE

REACTIONS (6)
  - Illness [Unknown]
  - Tremor [Unknown]
  - Tinnitus [Unknown]
  - Muscle twitching [None]
  - Diplopia [Unknown]
  - Contrast media deposition [Unknown]
